FAERS Safety Report 9216320 (Version 1)
Quarter: 2013Q2

REPORT INFORMATION
  Report Type: Spontaneous
  Country: US (occurrence: None)
  Receive Date: 20130404
  Receipt Date: 20130404
  Transmission Date: 20140414
  Serious: Yes (Hospitalization, Other)
  Sender: FDA-Public Use
  Company Number: 2013/075

PATIENT
  Sex: Female

DRUGS (3)
  1. AMLODIPINE [Suspect]
     Indication: HYPERTENSION
  2. ATORVASTATIN [Suspect]
     Indication: HYPERTENSION
  3. BENDROFLUMETHIAZIDE [Concomitant]

REACTIONS (16)
  - Swollen tongue [None]
  - Local swelling [None]
  - Skin discolouration [None]
  - Feeling hot [None]
  - Back pain [None]
  - Emotional distress [None]
  - Shock [None]
  - Muscle twitching [None]
  - Heart rate increased [None]
  - Hypoaesthesia [None]
  - Muscle tightness [None]
  - Hypersomnia [None]
  - Drug interaction [None]
  - Blood pressure increased [None]
  - Cellulitis [None]
  - Hypersensitivity [None]
